FAERS Safety Report 24747894 (Version 1)
Quarter: 2024Q4

REPORT INFORMATION
  Report Type: Report from Study
  Country: US (occurrence: US)
  Receive Date: 20241218
  Receipt Date: 20241218
  Transmission Date: 20250115
  Serious: Yes (Other)
  Sender: ABBVIE
  Company Number: US-ABBVIE-6046305

PATIENT
  Age: 64 Year
  Sex: Female

DRUGS (2)
  1. UBRELVY [Suspect]
     Active Substance: UBROGEPANT
     Indication: Migraine
     Dosage: !00 MILLIGRAM AS NEEDED
     Route: 048
     Dates: start: 202406, end: 20241128
  2. CODEINE [Concomitant]
     Active Substance: CODEINE
     Indication: Migraine
     Route: 065
     Dates: start: 20241211

REACTIONS (6)
  - Gallbladder operation [Recovered/Resolved]
  - Migraine [Recovered/Resolved]
  - Feeding disorder [Unknown]
  - Dehydration [Unknown]
  - Pain [Unknown]
  - Nausea [Recovering/Resolving]

NARRATIVE: CASE EVENT DATE: 20240101
